FAERS Safety Report 5453943-4 (Version None)
Quarter: 2007Q3

REPORT INFORMATION
  Report Type: 
  Country: None (occurrence: None)
  Receive Date: 20070917
  Receipt Date: 20070702
  Transmission Date: 20080115
  Serious: No
  Sender: FDA-Public Use
  Company Number: US-ASTRAZENECA-2006UW03297

PATIENT
  Age: 420 Month
  Sex: Female
  Weight: 95.5 kg

DRUGS (6)
  1. SEROQUEL [Suspect]
     Indication: PSYCHOTIC DISORDER
     Route: 048
     Dates: start: 20010101, end: 20060101
  2. SEROQUEL [Suspect]
     Route: 048
     Dates: start: 20050101
  3. GEODON [Concomitant]
     Route: 048
     Dates: start: 20010101, end: 20021001
  4. PAXIL [Concomitant]
     Route: 048
     Dates: start: 20020101
  5. AMBIEN [Concomitant]
     Route: 048
     Dates: start: 20040101
  6. MIRTAZAPINE [Concomitant]
     Route: 048
     Dates: start: 20050101

REACTIONS (6)
  - BLOOD CHOLESTEROL INCREASED [None]
  - BLOOD TRIGLYCERIDES INCREASED [None]
  - DIABETES MELLITUS [None]
  - HYSTERECTOMY [None]
  - OBESITY [None]
  - WEIGHT INCREASED [None]
